FAERS Safety Report 6331653-9 (Version None)
Quarter: 2009Q3

REPORT INFORMATION
  Report Type: 
  Country: None (occurrence: None)
  Receive Date: 20090827
  Receipt Date: 20090825
  Transmission Date: 20100115
  Serious: Yes (Hospitalization, Other)
  Sender: FDA-Public Use
  Company Number: PHHY2009JP35819

PATIENT
  Age: 65 Year
  Sex: Female

DRUGS (2)
  1. CYCLOSPORINE [Suspect]
     Indication: MYELODYSPLASTIC SYNDROME
     Dosage: UNK
  2. CYCLOSPORINE [Suspect]
     Indication: REFRACTORY ANAEMIA

REACTIONS (16)
  - ABASIA [None]
  - ACUTE LEUKAEMIA [None]
  - AREFLEXIA [None]
  - BONE MARROW FAILURE [None]
  - CHRONIC MYELOMONOCYTIC LEUKAEMIA [None]
  - CSF PROTEIN INCREASED [None]
  - DEMYELINATING POLYNEUROPATHY [None]
  - DEMYELINATION [None]
  - DISEASE PROGRESSION [None]
  - DYSAESTHESIA [None]
  - HAEMOGLOBIN DECREASED [None]
  - MONOCYTOSIS [None]
  - MUSCULAR WEAKNESS [None]
  - MYELODYSPLASTIC SYNDROME [None]
  - NERVE CONDUCTION STUDIES ABNORMAL [None]
  - PLATELET COUNT INCREASED [None]
